FAERS Safety Report 10461642 (Version 1)
Quarter: 2014Q3

REPORT INFORMATION
  Report Type: Spontaneous
  Country: US (occurrence: None)
  Receive Date: 20140916
  Receipt Date: 20140916
  Transmission Date: 20150326
  Serious: Yes (Hospitalization)
  Sender: FDA-Public Use
  Company Number: US-001236

PATIENT
  Age: 71 Year
  Sex: Male

DRUGS (2)
  1. GATTEX [Suspect]
     Active Substance: TEDUGLUTIDE\WATER
     Indication: SHORT-BOWEL SYNDROME
     Dosage: DF
     Route: 058
  2. SOLUTION FOR PARENTERAL NUTRITION [Concomitant]

REACTIONS (4)
  - Chills [None]
  - Eye pain [None]
  - Drug dose omission [None]
  - Pyrexia [None]

NARRATIVE: CASE EVENT DATE: 20140830
